FAERS Safety Report 15074500 (Version 1)
Quarter: 2018Q2

REPORT INFORMATION
  Report Type: Spontaneous
  Country: US (occurrence: US)
  Receive Date: 20180627
  Receipt Date: 20180627
  Transmission Date: 20180711
  Serious: No
  Sender: FDA-Public Use
  Company Number: US-SAOL THERAPEUTICS-2018SAO00516

PATIENT
  Age: 49 Year
  Sex: Male

DRUGS (5)
  1. BACLOFEN. [Suspect]
     Active Substance: BACLOFEN
     Dosage: 30 ?G, \DAY
     Route: 037
  2. CLONIDINE. [Suspect]
     Active Substance: CLONIDINE
     Route: 037
  3. MORPHINE [Suspect]
     Active Substance: MORPHINE
     Route: 037
  4. DILAUDID [Suspect]
     Active Substance: HYDROMORPHONE HYDROCHLORIDE
     Route: 037
  5. COMPOUNDED MORPHINE [Suspect]
     Active Substance: MORPHINE

REACTIONS (12)
  - Erectile dysfunction [Unknown]
  - Overdose [Unknown]
  - Weight decreased [Unknown]
  - Peripheral swelling [Unknown]
  - Pain [Unknown]
  - Hypoaesthesia [Unknown]
  - Implant site swelling [Unknown]
  - Blood testosterone decreased [Unknown]
  - Mental disorder [Recovered/Resolved]
  - Affect lability [Unknown]
  - Paraesthesia [Unknown]
  - Dysphonia [Not Recovered/Not Resolved]

NARRATIVE: CASE EVENT DATE: 20160628
